FAERS Safety Report 9002770 (Version 1)
Quarter: 2012Q4

REPORT INFORMATION
  Report Type: Spontaneous
  Country: ES (occurrence: None)
  Receive Date: 20121226
  Receipt Date: 20121226
  Transmission Date: 20130627
  Serious: Yes (Hospitalization, Disabling)
  Sender: FDA-Public Use
  Company Number: ES-ACCORD-015598

PATIENT
  Age: 64 Year
  Sex: Male

DRUGS (1)
  1. MYCOPHENOLATE MOFETIL (MYCOPHENOLATE MOFETIL) [Suspect]
     Indication: HEART TRANSPLANT
     Dosage: 1000.00-Mg-12.0Ho/urs
     Dates: start: 2004

REACTIONS (10)
  - Cytomegalovirus chorioretinitis [None]
  - Pneumonia [None]
  - Diarrhoea [None]
  - Retinal detachment [None]
  - Herpes simplex ophthalmic [None]
  - Visual acuity reduced [None]
  - Chorioretinitis [None]
  - Intermittent claudication [None]
  - Arteriosclerosis [None]
  - Quality of life decreased [None]
